FAERS Safety Report 16967693 (Version 2)
Quarter: 2019Q4

REPORT INFORMATION
  Report Type: Spontaneous
  Country: FI (occurrence: FI)
  Receive Date: 20191028
  Receipt Date: 20191106
  Transmission Date: 20200122
  Serious: Yes (Other)
  Sender: FDA-Public Use
  Company Number: FI-ELI_LILLY_AND_COMPANY-FI201910008139

PATIENT
  Age: 36 Year
  Sex: Female

DRUGS (1)
  1. ZYPADHERA [Suspect]
     Active Substance: OLANZAPINE PAMOATE
     Indication: SCHIZOPHRENIA
     Dosage: 300 MG, UNKNOWN
     Route: 030
     Dates: start: 2015

REACTIONS (8)
  - Malaise [Unknown]
  - Post-injection delirium sedation syndrome [Unknown]
  - Tremor [Unknown]
  - Dizziness [Unknown]
  - Injection site haemorrhage [Unknown]
  - Pallor [Unknown]
  - Feeling abnormal [Unknown]
  - Blood pressure increased [Unknown]
